FAERS Safety Report 10383441 (Version 2)
Quarter: 2014Q3

REPORT INFORMATION
  Report Type: Spontaneous
  Country: FR (occurrence: FR)
  Receive Date: 20140814
  Receipt Date: 20140902
  Transmission Date: 20150326
  Serious: Yes (Hospitalization)
  Sender: FDA-Public Use
  Company Number: FR-UCBSA-2014009054

PATIENT
  Age: 57 Year
  Sex: Male

DRUGS (20)
  1. PREZISTA [Suspect]
     Active Substance: DARUNAVIR ETHANOLATE
     Dosage: UNK
     Route: 048
     Dates: start: 20140616
  2. LEDERFOLINE [Concomitant]
     Active Substance: LEUCOVORIN CALCIUM
  3. LANSOYL [Concomitant]
     Active Substance: MINERAL OIL
  4. BIPROFENID [Concomitant]
     Active Substance: KETOPROFEN
  5. KEPPRA [Suspect]
     Active Substance: LEVETIRACETAM
     Indication: GENERALISED TONIC-CLONIC SEIZURE
     Dosage: 500 MG, 2X/DAY (BID)
     Route: 048
     Dates: start: 20140526, end: 20140627
  6. CLINDAMYCIN [Suspect]
     Active Substance: CLINDAMYCIN\CLINDAMYCIN PHOSPHATE
     Indication: CEREBRAL TOXOPLASMOSIS
     Dosage: 600 MG, 3X/DAY (TID)
     Route: 048
     Dates: start: 20140610
  7. PREZISTANAIVE [Suspect]
     Active Substance: DARUNAVIR
     Indication: HIV INFECTION
     Dosage: UNK
     Route: 048
     Dates: start: 20140616
  8. ISENTRESS [Suspect]
     Active Substance: RALTEGRAVIR POTASSIUM
     Indication: HIV INFECTION
     Dosage: UNK
     Route: 048
     Dates: start: 20140613
  9. DEROXAT [Concomitant]
     Active Substance: PAROXETINE HYDROCHLORIDE
  10. OROZAMUDOL [Concomitant]
  11. NORVIR [Suspect]
     Active Substance: RITONAVIR
     Indication: HIV INFECTION
     Dosage: UNK
     Route: 048
     Dates: start: 20140616
  12. MALOCIDE [Suspect]
     Active Substance: PYRIMETHAMINE
     Indication: CEREBRAL TOXOPLASMOSIS
     Dosage: 50 MG, ONCE DAILY (QD)
     Route: 048
     Dates: start: 20140517
  13. LOVENOX [Concomitant]
     Active Substance: ENOXAPARIN SODIUM
  14. TRUVADA [Suspect]
     Active Substance: EMTRICITABINE\TENOFOVIR DISOPROXIL FUMARATE
     Indication: HIV INFECTION
     Dosage: UNK
     Route: 048
     Dates: start: 20140613
  15. TRANSIPEG [Concomitant]
     Active Substance: POLYETHYLENE GLYCOL 3350
  16. ACUPAN [Concomitant]
     Active Substance: NEFOPAM HYDROCHLORIDE
  17. INEXIUM [Concomitant]
     Active Substance: ESOMEPRAZOLE
  18. XATRAL [Concomitant]
     Active Substance: ALFUZOSIN
  19. PRIMPERAN [Concomitant]
     Active Substance: METOCLOPRAMIDE HYDROCHLORIDE
  20. SPASFON [Concomitant]
     Active Substance: PHLOROGLUCINOL

REACTIONS (2)
  - Neutropenia [Not Recovered/Not Resolved]
  - Normochromic normocytic anaemia [Not Recovered/Not Resolved]

NARRATIVE: CASE EVENT DATE: 20140612
